FAERS Safety Report 5285401-4 (Version None)
Quarter: 2007Q1

REPORT INFORMATION
  Report Type: 
  Country: None (occurrence: None)
  Receive Date: 20070328
  Receipt Date: 20070314
  Transmission Date: 20070707
  Serious: Yes (Hospitalization)
  Sender: FDA-Public Use
  Company Number: 15969

PATIENT
  Age: 69 Year
  Sex: Male

DRUGS (4)
  1. CYTARABINE [Suspect]
     Indication: ACUTE MYELOID LEUKAEMIA
     Dosage: 42 MG SC
     Route: 058
     Dates: start: 20060810, end: 20060816
  2. ISONIAZID [Concomitant]
  3. VITAMIN B6 [Concomitant]
  4. SYNTHROID [Concomitant]

REACTIONS (2)
  - BONE MARROW FAILURE [None]
  - FEBRILE NEUTROPENIA [None]
